FAERS Safety Report 25105903 (Version 1)
Quarter: 2025Q1

REPORT INFORMATION
  Report Type: Spontaneous
  Country: JP (occurrence: JP)
  Receive Date: 20250321
  Receipt Date: 20250321
  Transmission Date: 20250409
  Serious: Yes (Death, Other)
  Sender: MERCK SHARP & DOHME LLC
  Company Number: JP-009507513-2260406

PATIENT
  Age: 53 Year
  Sex: Female

DRUGS (2)
  1. PEMBROLIZUMAB [Suspect]
     Active Substance: PEMBROLIZUMAB
     Indication: Tongue neoplasm malignant stage unspecified
     Route: 041
  2. paclitaxel (PTX) [Concomitant]
     Indication: Tongue neoplasm malignant stage unspecified

REACTIONS (2)
  - Death [Fatal]
  - Malignant neoplasm progression [Recovered/Resolved]
